FAERS Safety Report 23573822 (Version 2)
Quarter: 2024Q1

REPORT INFORMATION
  Report Type: Report from Study
  Country: MX (occurrence: MX)
  Receive Date: 20240228
  Receipt Date: 20240312
  Transmission Date: 20240410
  Serious: Yes (Hospitalization, Disabling)
  Sender: FDA-Public Use
  Company Number: MX-002147023-NVSC2024MX041541

PATIENT
  Sex: Female
  Weight: 96 kg

DRUGS (8)
  1. IMATINIB [Suspect]
     Active Substance: IMATINIB
     Indication: Chronic myeloid leukaemia
     Dosage: 1 DOSAGE FORM, Q12H
     Route: 048
     Dates: start: 2008, end: 2017
  2. IMATINIB [Suspect]
     Active Substance: IMATINIB
     Dosage: 2 DOSAGE FORM, BID (MORNING AND NIGHT)
     Route: 065
     Dates: start: 2018
  3. IMATINIB [Suspect]
     Active Substance: IMATINIB
     Dosage: 1 DOSAGE FORM, BID (MORNING AND NIGHT)
     Route: 065
  4. METFORMIN [Concomitant]
     Active Substance: METFORMIN HYDROCHLORIDE
     Indication: Diabetes mellitus
     Dosage: 1 DOSAGE FORM, Q12H (STOPPED 6 YEARS AGO)
     Route: 048
     Dates: start: 2002
  5. INSULIN NOS [Concomitant]
     Active Substance: INSULIN NOS
     Indication: Diabetes mellitus
     Dosage: UNK (STARTED 6 YEARS AGO) 30IU IN THE MORNING AND 20IU AT NIGHT
     Route: 058
  6. CARBAMAZEPINE [Concomitant]
     Active Substance: CARBAMAZEPINE
     Indication: Diabetic neuropathy
     Dosage: 1 DOSAGE FORM, QD (STARTED SEVERAL  YEARS AGO)
     Route: 048
  7. DAPAGLIFLOZIN [Concomitant]
     Active Substance: DAPAGLIFLOZIN
     Indication: Diabetes mellitus
     Dosage: 1 DOSAGE FORM, IN THE AFTERNOON
     Route: 048
     Dates: start: 2022
  8. TRIB [Concomitant]
     Indication: Chronic myeloid leukaemia
     Dosage: 1 DOSAGE FORM, QD
     Route: 048
     Dates: start: 2008

REACTIONS (2)
  - Abscess [Recovered/Resolved]
  - Drug ineffective [Unknown]

NARRATIVE: CASE EVENT DATE: 20170101
